FAERS Safety Report 19273194 (Version 2)
Quarter: 2021Q2

REPORT INFORMATION
  Report Type: Spontaneous
  Country: AU (occurrence: AU)
  Receive Date: 20210518
  Receipt Date: 20210527
  Transmission Date: 20210717
  Serious: Yes (Other)
  Sender: FDA-Public Use
  Company Number: AU-BAXTER-2021BAX011161

PATIENT
  Sex: Male

DRUGS (6)
  1. SODIUM CHLORIDE (VIAFLO) 500ML [Suspect]
     Active Substance: SODIUM CHLORIDE
     Dosage: COMMENCED OVER 2HOURS.
     Route: 065
     Dates: start: 20210506, end: 20210506
  2. DOCETAXEL. [Suspect]
     Active Substance: DOCETAXEL
     Indication: PRODUCT USED FOR UNKNOWN INDICATION
     Dosage: FIRST DOSE
     Route: 065
  3. DOCETAXEL. [Suspect]
     Active Substance: DOCETAXEL
     Dosage: RECOMMENCED AFTER 30 MINUTES, OVER 4 HOURS AT 1/4 RATE
     Route: 065
     Dates: start: 20210506
  4. DOCETAXEL. [Suspect]
     Active Substance: DOCETAXEL
     Dosage: COMMENCED OVER 2HOURS.
     Route: 065
     Dates: start: 20210506, end: 20210506
  5. SODIUM CHLORIDE (VIAFLO) 500ML [Suspect]
     Active Substance: SODIUM CHLORIDE
     Indication: MEDICATION DILUTION
     Dosage: WITH FIRST DOSE OF DOCETAXEL.
     Route: 065
  6. SODIUM CHLORIDE (VIAFLO) 500ML [Suspect]
     Active Substance: SODIUM CHLORIDE
     Dosage: RECOMMENCED AFTER 30 MINUTES FOR OVER 4 HOURS AT A 1/4 RATE
     Route: 065
     Dates: start: 20210506

REACTIONS (6)
  - Erythema [Recovered/Resolved]
  - Adverse drug reaction [Unknown]
  - Miliaria [Recovered/Resolved]
  - Skin discolouration [Recovered/Resolved]
  - Back pain [Recovered/Resolved]
  - Paraesthesia [Recovered/Resolved]

NARRATIVE: CASE EVENT DATE: 20210506
